FAERS Safety Report 19678838 (Version 1)
Quarter: 2021Q3

REPORT INFORMATION
  Report Type: Spontaneous
  Country: US (occurrence: US)
  Receive Date: 20210809
  Receipt Date: 20210809
  Transmission Date: 20211014
  Serious: No
  Sender: FDA-Public Use
  Company Number: US-ABBVIE-21K-163-3914182-00

PATIENT
  Sex: Male

DRUGS (1)
  1. DEPAKOTE [Suspect]
     Active Substance: DIVALPROEX SODIUM
     Indication: PRODUCT USED FOR UNKNOWN INDICATION
     Route: 048
     Dates: end: 202104

REACTIONS (7)
  - Blood cholesterol increased [Unknown]
  - Thyroid function test abnormal [Unknown]
  - Fatigue [Unknown]
  - Hunger [Unknown]
  - Hepatic function abnormal [Unknown]
  - Weight increased [Unknown]
  - Blood triglycerides increased [Unknown]
